FAERS Safety Report 5600550-6 (Version None)
Quarter: 2008Q1

REPORT INFORMATION
  Report Type: 
  Country: None (occurrence: None)
  Receive Date: 20080123
  Receipt Date: 20080111
  Transmission Date: 20080703
  Serious: Yes (Hospitalization)
  Sender: FDA-Public Use
  Company Number: FR-BOEHRINGER INGELHEIM PHARMACEUTICALS, INC.-2008-FF-00027FF

PATIENT
  Age: 83 Year
  Sex: Male

DRUGS (5)
  1. JOSIR [Suspect]
     Route: 048
     Dates: start: 20071023, end: 20071119
  2. VERCYTE [Concomitant]
     Route: 048
  3. INEXIUM [Concomitant]
     Route: 048
     Dates: start: 20071113, end: 20071119
  4. FORLAX [Concomitant]
     Route: 048
     Dates: end: 20071010
  5. CORDARONE [Concomitant]
     Route: 048

REACTIONS (3)
  - ERYTHEMA [None]
  - PRURIGO [None]
  - PRURITUS [None]
